FAERS Safety Report 16703528 (Version 3)
Quarter: 2019Q3

REPORT INFORMATION
  Report Type: Spontaneous
  Country: BR (occurrence: BR)
  Receive Date: 20190814
  Receipt Date: 20190930
  Transmission Date: 20191004
  Serious: Yes (Other)
  Sender: FDA-Public Use
  Company Number: BR-SEATTLE GENETICS-2019SGN02840

PATIENT
  Sex: Female

DRUGS (1)
  1. ADCETRIS [Suspect]
     Active Substance: BRENTUXIMAB VEDOTIN
     Indication: CUTANEOUS T-CELL LYMPHOMA
     Dosage: 1.8 MILLIGRAM/KILOGRAM
     Route: 042

REACTIONS (2)
  - Cutaneous T-cell lymphoma [Unknown]
  - Off label use [Not Recovered/Not Resolved]
